FAERS Safety Report 25108308 (Version 1)
Quarter: 2025Q1

REPORT INFORMATION
  Report Type: Spontaneous
  Country: DE (occurrence: DE)
  Receive Date: 20250322
  Receipt Date: 20250322
  Transmission Date: 20250409
  Serious: Yes (Other)
  Sender: AUROBINDO
  Company Number: DE-SANDOZ-SDZ2025DE012953

PATIENT
  Sex: Male

DRUGS (2)
  1. SERTRALINE [Interacting]
     Active Substance: SERTRALINE HYDROCHLORIDE
     Indication: Product used for unknown indication
     Route: 065
  2. OPIPRAMOL [Interacting]
     Active Substance: OPIPRAMOL
     Indication: Product used for unknown indication
     Route: 065

REACTIONS (3)
  - Self-destructive behaviour [Unknown]
  - Mental disorder [Unknown]
  - Drug interaction [Unknown]
